FAERS Safety Report 6234555-1 (Version None)
Quarter: 2009Q2

REPORT INFORMATION
  Report Type: 
  Country: None (occurrence: None)
  Receive Date: 20090615
  Receipt Date: 20090430
  Transmission Date: 20091009
  Serious: No
  Sender: FDA-Public Use
  Company Number: DSA_33581_2009

PATIENT
  Sex: Female

DRUGS (2)
  1. XENAZINE [Suspect]
     Indication: DRUG USE FOR UNKNOWN INDICATION
     Dosage: 12.5 MG, 1/2 TABLET EVERY EVENING, 12.5 MG BID, 1/2 TABLET
     Dates: start: 20090421, end: 20090401
  2. XENAZINE [Suspect]
     Indication: DRUG USE FOR UNKNOWN INDICATION
     Dosage: 12.5 MG, 1/2 TABLET EVERY EVENING, 12.5 MG BID, 1/2 TABLET
     Dates: start: 20090414, end: 20090420

REACTIONS (4)
  - ASTHENIA [None]
  - DRUG ADMINISTRATION ERROR [None]
  - MOVEMENT DISORDER [None]
  - SOMNOLENCE [None]
